FAERS Safety Report 5019835-X (Version None)
Quarter: 2006Q2

REPORT INFORMATION
  Report Type: 
  Country: None (occurrence: None)
  Receive Date: 20060605
  Receipt Date: 20060605
  Transmission Date: 20061013
  Serious: Yes (Death, Life-Threatening)
  Sender: FDA-Public Use
  Company Number: None

PATIENT
  Age: 49 Year
  Sex: Male
  Weight: 129 kg

DRUGS (1)
  1. EPOPROSTENOL [Suspect]
     Indication: OXYGEN SATURATION DECREASED
     Dosage: 20 NG/KG/MIN INHALED
     Route: 055
     Dates: start: 20060515, end: 20060516

REACTIONS (1)
  - ATRIAL FIBRILLATION [None]
